FAERS Safety Report 7054453-3 (Version None)
Quarter: 2010Q4

REPORT INFORMATION
  Report Type: 
  Country: None (occurrence: None)
  Receive Date: 20101020
  Receipt Date: 20101011
  Transmission Date: 20110411
  Serious: Yes (Hospitalization)
  Sender: FDA-Public Use
  Company Number: US-ELI_LILLY_AND_COMPANY-US201009003798

PATIENT
  Sex: Male
  Weight: 138.32 kg

DRUGS (12)
  1. BYETTA [Suspect]
     Indication: TYPE 2 DIABETES MELLITUS
     Dosage: 5 UG, 2/D
     Route: 058
  2. BYETTA [Suspect]
     Dosage: 10 UG, 2/D
     Route: 058
  3. ASPIRIN [Concomitant]
     Indication: PROPHYLAXIS
     Dosage: 81 MG, DAILY (1/D)
     Route: 048
  4. TERAZOSIN HCL [Concomitant]
     Indication: HYPERTENSION
     Dosage: 10 MG, DAILY (1/D)
     Route: 048
  5. BUPROPION [Concomitant]
     Indication: DEPRESSION
     Dosage: 150 MG, 2/D
     Route: 048
  6. SOLIFENACIN [Concomitant]
     Dosage: 5 MG, DAILY (1/D)
     Route: 048
  7. OMEPRAZOLE [Concomitant]
     Indication: GASTROOESOPHAGEAL REFLUX DISEASE
     Dosage: 20 MG, DAILY (1/D)
     Route: 048
  8. FINASTERIDE [Concomitant]
     Indication: BENIGN PROSTATIC HYPERPLASIA
     Dosage: 5 MG, DAILY (1/D)
     Route: 048
  9. GLIPIZIDE [Concomitant]
     Indication: TYPE 2 DIABETES MELLITUS
     Dosage: 10 MG, 2/D
     Route: 048
  10. HYDROCHLOROTHIAZIDE [Concomitant]
     Indication: HYPERTENSION
     Dosage: 25 MG, DAILY (1/D)
     Route: 048
  11. IRON SULFATETHIAMIN COMPOUND TAB [Concomitant]
     Dosage: 325 MG, DAILY (1/D)
     Route: 048
  12. ANDROGEL [Concomitant]

REACTIONS (2)
  - CHEST DISCOMFORT [None]
  - CORONARY ARTERY DISEASE [None]
